FAERS Safety Report 8161789-1 (Version None)
Quarter: 2012Q1

REPORT INFORMATION
  Report Type: 
  Country: None (occurrence: None)
  Receive Date: 20120224
  Receipt Date: 20110418
  Transmission Date: 20120608
  Serious: No
  Sender: FDA-Public Use
  Company Number: US-BRISTOL-MYERS SQUIBB COMPANY-15680507

PATIENT
  Age: 59 Year
  Sex: Male

DRUGS (7)
  1. OMEPRAZOLE [Concomitant]
  2. SIMVASTATIN [Concomitant]
  3. LANTUS [Concomitant]
  4. GLIMEPIRIDE [Concomitant]
  5. HYDROCHLOROTHIAZIDE [Concomitant]
  6. GLUCOPHAGE [Suspect]
  7. QUINAPRIL [Concomitant]

REACTIONS (1)
  - ACCIDENTAL EXPOSURE [None]
